FAERS Safety Report 10864595 (Version 1)
Quarter: 2015Q1

REPORT INFORMATION
  Report Type: Spontaneous
  Country: US (occurrence: US)
  Receive Date: 20150224
  Receipt Date: 20150224
  Transmission Date: 20150721
  Serious: Yes (Other)
  Sender: FDA-Public Use
  Company Number: US-GLAXOSMITHKLINE-US2014052484

PATIENT

DRUGS (1)
  1. NICOTINE. [Suspect]
     Active Substance: NICOTINE
     Indication: PRODUCT USED FOR UNKNOWN INDICATION
     Dosage: DOSAGE FORM: UNSPECIFIED
     Route: 065

REACTIONS (9)
  - Loss of consciousness [Unknown]
  - Tremor [Unknown]
  - Tachycardia [Recovered/Resolved]
  - Hypertension [Unknown]
  - Tobacco poisoning [Unknown]
  - Respiratory failure [Unknown]
  - Diarrhoea [Unknown]
  - Vomiting [Unknown]
  - Seizure [Unknown]
